FAERS Safety Report 19945408 (Version 5)
Quarter: 2024Q1

REPORT INFORMATION
  Report Type: Spontaneous
  Country: US (occurrence: US)
  Receive Date: 20211012
  Receipt Date: 20240109
  Transmission Date: 20240409
  Serious: Yes (Other)
  Sender: FDA-Public Use
  Company Number: US-PFIZER INC-202101243610

PATIENT
  Age: 69 Year
  Sex: Female
  Weight: 75.737 kg

DRUGS (3)
  1. IBRANCE [Suspect]
     Active Substance: PALBOCICLIB
     Indication: Breast cancer female
     Dosage: 125 MG
  2. IBRANCE [Suspect]
     Active Substance: PALBOCICLIB
     Dosage: 100 MG
  3. IBRANCE [Suspect]
     Active Substance: PALBOCICLIB
     Dosage: 75 MG DAILY, TAKE ONE TABLET ON DAYS 1-21 OF 28 DAY CYCLE, FOLLOWED BY 7 DAYS OFF
     Route: 048

REACTIONS (3)
  - Neutropenia [Unknown]
  - Full blood count decreased [Unknown]
  - Fatigue [Unknown]
